FAERS Safety Report 8216292-7 (Version None)
Quarter: 2012Q1

REPORT INFORMATION
  Report Type: 
  Country: None (occurrence: None)
  Receive Date: 20120316
  Receipt Date: 20120307
  Transmission Date: 20120608
  Serious: Yes (Hospitalization)
  Sender: FDA-Public Use
  Company Number: PHHY2012DE020555

PATIENT
  Age: 32 Year
  Sex: Female

DRUGS (12)
  1. CLOZAPINE [Suspect]
     Dosage: 100 MG, UNK
     Route: 048
     Dates: start: 20110905, end: 20110909
  2. FLUANXOL [Concomitant]
     Dosage: 60 MG,(EVERY 21DAYS)
     Route: 048
     Dates: start: 20110709, end: 20110913
  3. BIFITERAL [Concomitant]
     Dosage: 10 ML, UNK
     Route: 048
     Dates: start: 20110810, end: 20110912
  4. SOLIAN [Concomitant]
  5. CLOZAPINE [Suspect]
     Dosage: 200 MG, UNK
     Dates: start: 20110910, end: 20110911
  6. CLOZAPINE [Suspect]
     Dosage: 25 MG,(1 DAY)
     Route: 048
     Dates: start: 20110831, end: 20110831
  7. CLOZAPINE [Suspect]
     Dosage: 75 MG, UNK
     Route: 048
     Dates: start: 20110902, end: 20110904
  8. MELNEURIN [Concomitant]
     Dosage: 75 MG, UNK
     Route: 048
     Dates: start: 20110810
  9. CLOZAPINE [Suspect]
     Dosage: 50 MG, UNK
     Dates: start: 20110901, end: 20110901
  10. CLOZAPINE [Suspect]
     Dosage: 225 MG, UNK
     Dates: start: 20110912, end: 20110914
  11. CLOZAPINE [Suspect]
     Dosage: 250 MG, UNK
     Dates: start: 20110915, end: 20110915
  12. CLINOVIR [Concomitant]
     Dosage: 150 MG, UNK

REACTIONS (15)
  - PERICARDIAL EFFUSION [None]
  - C-REACTIVE PROTEIN ABNORMAL [None]
  - NEUTROPHIL COUNT INCREASED [None]
  - INFLAMMATION [None]
  - TROPONIN T INCREASED [None]
  - PYREXIA [None]
  - RESPIRATORY RATE INCREASED [None]
  - MYOCARDITIS [None]
  - SINUS TACHYCARDIA [None]
  - GASTROENTERITIS [None]
  - VOMITING [None]
  - DIARRHOEA [None]
  - PERICARDITIS [None]
  - AGRANULOCYTOSIS [None]
  - CONSTIPATION [None]
